FAERS Safety Report 19137736 (Version 1)
Quarter: 2021Q2

REPORT INFORMATION
  Report Type: Spontaneous
  Country: US (occurrence: US)
  Receive Date: 20210414
  Receipt Date: 20210414
  Transmission Date: 20210717
  Serious: Yes (Death, Disabling, Other)
  Sender: FDA-Public Use
  Company Number: US-PURDUE-USA-2020-0229820

PATIENT
  Age: 34 Year
  Sex: Male

DRUGS (1)
  1. OXYCONTIN [Suspect]
     Active Substance: OXYCODONE HYDROCHLORIDE
     Indication: PAIN
     Dosage: UNK
     Route: 048

REACTIONS (8)
  - Substance abuse [Fatal]
  - Drug dependence [Unknown]
  - Mental impairment [Unknown]
  - Toxicity to various agents [Fatal]
  - Depression [Unknown]
  - Pain [None]
  - Physical disability [Unknown]
  - Emotional distress [Unknown]

NARRATIVE: CASE EVENT DATE: 20190301
